FAERS Safety Report 4665896-7 (Version None)
Quarter: 2005Q2

REPORT INFORMATION
  Report Type: 
  Country: None (occurrence: None)
  Receive Date: 20050517
  Receipt Date: 20050506
  Transmission Date: 20051028
  Serious: Yes (Other)
  Sender: FDA-Public Use
  Company Number: 200511603BCC

PATIENT
  Age: 27 Year
  Sex: Male
  Weight: 86.1834 kg

DRUGS (1)
  1. NAPROXEN [Suspect]
     Indication: PAIN IN EXTREMITY
     Dosage: 220 MG, ONCE, ORAL
     Route: 048
     Dates: start: 20050307

REACTIONS (5)
  - APHAGIA [None]
  - CAUSTIC INJURY [None]
  - PAIN [None]
  - SENSATION OF FOREIGN BODY [None]
  - ULCER [None]
